FAERS Safety Report 13485788 (Version 1)
Quarter: 2017Q2

REPORT INFORMATION
  Report Type: Spontaneous
  Country: US (occurrence: US)
  Receive Date: 20170425
  Receipt Date: 20170425
  Transmission Date: 20170830
  Serious: Yes (Life-Threatening, Disabling, Other)
  Sender: FDA-Public Use
  Company Number: None

PATIENT
  Age: 30 Year
  Sex: Female
  Weight: 77.11 kg

DRUGS (7)
  1. ADDERALL [Concomitant]
     Active Substance: AMPHETAMINE ASPARTATE\AMPHETAMINE SULFATE\DEXTROAMPHETAMINE SACCHARATE\DEXTROAMPHETAMINE SULFATE
  2. VALIUM [Concomitant]
     Active Substance: DIAZEPAM
  3. MIRENA [Suspect]
     Active Substance: LEVONORGESTREL
     Dates: start: 20140506, end: 20161104
  4. FLEXERIL [Concomitant]
     Active Substance: CYCLOBENZAPRINE HYDROCHLORIDE
  5. PROZAC [Concomitant]
     Active Substance: FLUOXETINE HYDROCHLORIDE
  6. VITAMIN D [Concomitant]
     Active Substance: CHOLECALCIFEROL
  7. ALEVE [Concomitant]
     Active Substance: NAPROXEN SODIUM

REACTIONS (23)
  - Dysmenorrhoea [None]
  - Menstruation irregular [None]
  - Myalgia [None]
  - Ovarian cyst [None]
  - Haemorrhage [None]
  - Fibromyalgia [None]
  - Amnesia [None]
  - Dizziness [None]
  - Anxiety [None]
  - Weight increased [None]
  - Impaired work ability [None]
  - Paraesthesia [None]
  - Fall [None]
  - Endometriosis [None]
  - Mood swings [None]
  - Infertility [None]
  - Urinary tract infection [None]
  - Pelvic inflammatory disease [None]
  - Pain [None]
  - Insomnia [None]
  - Confusional state [None]
  - Hypoaesthesia [None]
  - Gait disturbance [None]

NARRATIVE: CASE EVENT DATE: 20140506
